FAERS Safety Report 7751942-0 (Version None)
Quarter: 2011Q3

REPORT INFORMATION
  Report Type: 
  Country: None (occurrence: None)
  Receive Date: 20110915
  Receipt Date: 20110906
  Transmission Date: 20111222
  Serious: Yes (Hospitalization)
  Sender: FDA-Public Use
  Company Number: CA-JNJFOC-20110903450

PATIENT
  Sex: Male

DRUGS (1)
  1. REMICADE [Suspect]
     Indication: MATERNAL EXPOSURE DURING PREGNANCY
     Route: 015

REACTIONS (6)
  - CYANOSIS [None]
  - PREMATURE BABY [None]
  - GASTROOESOPHAGEAL REFLUX DISEASE [None]
  - DYSPHAGIA [None]
  - URINARY TRACT INFECTION [None]
  - VIRAL INFECTION [None]
